FAERS Safety Report 8549752-X (Version None)
Quarter: 2012Q3

REPORT INFORMATION
  Report Type: 
  Country: None (occurrence: None)
  Receive Date: 20120730
  Receipt Date: 20120723
  Transmission Date: 20120928
  Serious: Yes (Other)
  Sender: FDA-Public Use
  Company Number: JP-009507513-1207JPN009362

PATIENT

DRUGS (7)
  1. PEG-INTRON [Suspect]
     Indication: HEPATITIS C
     Dosage: 1.0MCG/KG
     Route: 058
     Dates: start: 20120509, end: 20120516
  2. BIOFERMIN (BACILLUS SUBTILIS (+) LACTOBACILLUS ACIDOPHILUS (+) STREPTO [Concomitant]
     Route: 048
  3. NORVASC [Concomitant]
     Route: 048
  4. TELAVIC [Suspect]
     Indication: HEPATITIS C
     Route: 048
     Dates: start: 20120509, end: 20120518
  5. MAGLAX (MAGNESIUM OXIDE) [Concomitant]
     Route: 048
  6. FLAVITAN [Concomitant]
     Route: 048
  7. REBETOL [Suspect]
     Indication: HEPATITIS C
     Route: 048
     Dates: start: 20120509, end: 20120521

REACTIONS (5)
  - RENAL IMPAIRMENT [None]
  - DRUG ERUPTION [None]
  - VOMITING [None]
  - PRURITUS [None]
  - ANAEMIA [None]
